FAERS Safety Report 13540389 (Version 1)
Quarter: 2017Q2

REPORT INFORMATION
  Report Type: Spontaneous
  Country: AT (occurrence: AT)
  Receive Date: 20170512
  Receipt Date: 20170512
  Transmission Date: 20170830
  Serious: Yes (Hospitalization, Other)
  Sender: FDA-Public Use
  Company Number: AT-AMGEN GMBH-AUTSP2017072720

PATIENT
  Sex: Female

DRUGS (3)
  1. KYPROLIS [Suspect]
     Active Substance: CARFILZOMIB
     Indication: PLASMA CELL MYELOMA
     Dosage: 16 MG, (10 MG/M2)
     Route: 065
     Dates: start: 201604
  2. REVLIMID [Suspect]
     Active Substance: LENALIDOMIDE
     Indication: PLASMA CELL MYELOMA
     Dosage: 7.5 MG, (0-0-1; D1 TO 21)
     Route: 065
     Dates: start: 201604
  3. FORTECORTIN [Concomitant]
     Active Substance: DEXAMETHASONE
     Indication: PLASMA CELL MYELOMA
     Dosage: 20 MG, (DAY 1,2; DAY 8, 9; DAY 15, 16)
     Dates: start: 201604

REACTIONS (3)
  - Cervicobrachial syndrome [Unknown]
  - Cytopenia [Unknown]
  - Infection [Unknown]

NARRATIVE: CASE EVENT DATE: 2017
